FAERS Safety Report 5781413-2 (Version None)
Quarter: 2008Q2

REPORT INFORMATION
  Report Type: 
  Country: None (occurrence: None)
  Receive Date: 20080623
  Receipt Date: 20070524
  Transmission Date: 20081010
  Serious: No
  Sender: FDA-Public Use
  Company Number: US-ASTRAZENECA-2007UW12822

PATIENT
  Age: 50 Year
  Sex: Female
  Weight: 72.6 kg

DRUGS (3)
  1. ENTOCORT EC [Suspect]
     Indication: CROHN'S DISEASE
     Route: 048
     Dates: start: 20070308
  2. ASACOL [Concomitant]
  3. REMICADE [Concomitant]
     Dates: start: 20060601, end: 20070201

REACTIONS (3)
  - ARTHRALGIA [None]
  - PAIN IN JAW [None]
  - TEMPOROMANDIBULAR JOINT SYNDROME [None]
